FAERS Safety Report 6299482-2 (Version None)
Quarter: 2009Q3

REPORT INFORMATION
  Report Type: 
  Country: None (occurrence: None)
  Receive Date: 20090806
  Receipt Date: 20090729
  Transmission Date: 20100115
  Serious: Yes (Other)
  Sender: FDA-Public Use
  Company Number: B0586094A

PATIENT
  Age: 55 Year
  Sex: Female

DRUGS (1)
  1. MALARONE [Suspect]
     Route: 048

REACTIONS (6)
  - BLISTER [None]
  - BODY TEMPERATURE INCREASED [None]
  - ERYTHEMA [None]
  - PRURITUS GENERALISED [None]
  - RASH ERYTHEMATOUS [None]
  - STEVENS-JOHNSON SYNDROME [None]
